FAERS Safety Report 9601930 (Version 1)
Quarter: 2013Q4

REPORT INFORMATION
  Report Type: Spontaneous
  Country: US (occurrence: None)
  Receive Date: 20131004
  Receipt Date: 20131004
  Transmission Date: 20140711
  Serious: Yes (Hospitalization)
  Sender: FDA-Public Use
  Company Number: None

PATIENT
  Age: 78 Year
  Sex: Male
  Weight: 85 kg

DRUGS (16)
  1. WARFARIN [Suspect]
     Indication: ATRIAL FIBRILLATION
     Dosage: 3.5 MG ALT WITH 4 MG
     Route: 048
  2. TERAZOSIN [Concomitant]
  3. ATORVASTATIN [Concomitant]
  4. BENZONATATE [Concomitant]
  5. CHOLECALCIFEROL [Concomitant]
  6. OXYMETAZOLINE NASAL SPRAY [Concomitant]
  7. DOCUSATE SODIUM [Concomitant]
  8. DONEPEZIL [Concomitant]
  9. FAMOTIDINE [Concomitant]
  10. FLUTICASONE [Concomitant]
  11. MAGNESIUM GLUCONATE [Concomitant]
  12. METAXALONE [Concomitant]
  13. MONTELUKAST [Concomitant]
  14. MULTIVITAMIN [Concomitant]
  15. PROPRANOLOL [Concomitant]
  16. SERTRALINE [Concomitant]

REACTIONS (4)
  - Haematuria [None]
  - Epistaxis [None]
  - Asthenia [None]
  - International normalised ratio increased [None]
